FAERS Safety Report 8943455 (Version 2)
Quarter: 2013Q1

REPORT INFORMATION
  Report Type: Spontaneous
  Country: JP (occurrence: JP)
  Receive Date: 20121204
  Receipt Date: 20130302
  Transmission Date: 20140127
  Serious: Yes (Other)
  Sender: FDA-Public Use
  Company Number: PHHY2012JP110340

PATIENT
  Age: 65 Year
  Sex: Male

DRUGS (5)
  1. 5-FLUOROURACIL [Suspect]
     Indication: HEPATIC CANCER
     Dosage: 1250 MG, FOR 5 DAYS EVERY WEEK
  2. CISPLATIN [Suspect]
     Indication: HEPATIC CANCER
     Dosage: 5-10 MG, ON DAYS 01 TO 05 FOR 30 MIN
  3. SORAFENIB [Suspect]
     Indication: HEPATIC CANCER
     Dosage: 400 MG, BID
  4. SORAFENIB [Suspect]
     Dosage: 200 MG, BID
  5. SORAFENIB [Suspect]
     Dosage: 400 MG, BID

REACTIONS (4)
  - Hepatic artery thrombosis [Recovered/Resolved]
  - Hepatic artery occlusion [Recovered/Resolved]
  - Hepatocellular carcinoma [Recovered/Resolved]
  - Malignant neoplasm progression [Recovering/Resolving]
